FAERS Safety Report 11214761 (Version 1)
Quarter: 2015Q2

REPORT INFORMATION
  Report Type: Spontaneous
  Country: US (occurrence: None)
  Receive Date: 20150622
  Receipt Date: 20150622
  Transmission Date: 20150821
  Serious: Yes (Hospitalization)
  Sender: FDA-Public Use
  Company Number: None

PATIENT
  Age: 57 Year
  Sex: Male

DRUGS (1)
  1. TOBRAMYCIN SULF [Suspect]
     Active Substance: TOBRAMYCIN SULFATE
     Indication: BRONCHIECTASIS
     Dosage: 1 AMP BID RESPIRATORY (INHALATION)
     Route: 055

REACTIONS (2)
  - Lung infection [None]
  - Blood potassium increased [None]

NARRATIVE: CASE EVENT DATE: 20150420
